FAERS Safety Report 8877418 (Version 1)
Quarter: 2012Q4

REPORT INFORMATION
  Report Type: 
  Country: US (occurrence: US)
  Receive Date: 20121024
  Receipt Date: 20121024
  Transmission Date: 20130627
  Serious: No
  Sender: FDA-Public Use
  Company Number: US-PFIZER INC-2012262238

PATIENT
  Age: 54 Year
  Sex: Male

DRUGS (5)
  1. INLYTA [Suspect]
     Indication: MALIGNANT NEOPLASM OF RENAL PELVIS
     Dosage: 5 mg, UNK
     Dates: start: 20121001
  2. COREG [Concomitant]
     Dosage: UNK
  3. IMODIUM A-D [Concomitant]
  4. NORVASC [Concomitant]
  5. CRESTOR [Concomitant]

REACTIONS (1)
  - Hypertension [Unknown]
